FAERS Safety Report 6020717-5 (Version None)
Quarter: 2008Q4

REPORT INFORMATION
  Report Type: 
  Country: None (occurrence: None)
  Receive Date: 20081223
  Receipt Date: 20081223
  Transmission Date: 20090506
  Serious: Yes (Hospitalization)
  Sender: FDA-Public Use
  Company Number: None

PATIENT
  Sex: Female
  Weight: 65.3 kg

DRUGS (2)
  1. CARBOPLATIN [Suspect]
     Dosage: 568 MG
     Dates: start: 20081208, end: 20081208
  2. TAXOL [Interacting]
     Dosage: 303 MG
     Dates: end: 20081208

REACTIONS (4)
  - DYSPNOEA [None]
  - FEBRILE NEUTROPENIA [None]
  - PLATELET COUNT DECREASED [None]
  - WHITE BLOOD CELL COUNT DECREASED [None]
